FAERS Safety Report 8921337 (Version 2)
Quarter: 2013Q1

REPORT INFORMATION
  Report Type: Spontaneous
  Country: JP (occurrence: JP)
  Receive Date: 20121121
  Receipt Date: 20130220
  Transmission Date: 20140127
  Serious: No
  Sender: FDA-Public Use
  Company Number: JP-JNJFOC-20121110086

PATIENT
  Age: 6 Decade
  Sex: Male

DRUGS (2)
  1. TRAMCET [Suspect]
     Indication: PAIN
     Dosage: 1 PER 1 DAY
     Route: 048
     Dates: start: 20121102
  2. OPALMON [Concomitant]
     Dosage: 1 PER 1 WEEK
     Route: 048
     Dates: start: 20121102

REACTIONS (1)
  - Haemorrhage subcutaneous [Recovering/Resolving]
